FAERS Safety Report 10384032 (Version 3)
Quarter: 2014Q3

REPORT INFORMATION
  Report Type: Spontaneous
  Country: JP (occurrence: JP)
  Receive Date: 20140814
  Receipt Date: 20140916
  Transmission Date: 20150326
  Serious: Yes (Other)
  Sender: FDA-Public Use
  Company Number: PHHY2014JP053108

PATIENT
  Age: 46 Year
  Sex: Male

DRUGS (12)
  1. METGLUCO [Concomitant]
     Active Substance: METFORMIN HYDROCHLORIDE
     Dosage: UNK UKN, UNK
     Route: 048
     Dates: end: 20140415
  2. ZETIA [Concomitant]
     Active Substance: EZETIMIBE
     Dosage: UNK UKN, UNK
     Route: 048
  3. METHYCOBAL [Concomitant]
     Active Substance: METHYLCOBALAMIN
     Dosage: 250 MG
     Dates: start: 20140401
  4. OPALMON [Concomitant]
     Active Substance: LIMAPROST
     Dosage: 5 MG
     Route: 048
     Dates: start: 20140401
  5. GLACTIV [Concomitant]
     Active Substance: SITAGLIPTIN
     Dosage: 50 MG, UNK
     Route: 048
     Dates: start: 20130110, end: 20140415
  6. SILECE [Concomitant]
     Active Substance: FLUNITRAZEPAM
     Dosage: UNK UKN, UNK
  7. VOLTAREN [Suspect]
     Active Substance: DICLOFENAC SODIUM
     Indication: PAIN
     Dosage: 25 MG, DAILY
     Route: 048
     Dates: start: 20140401, end: 20140415
  8. LOXONIN [Concomitant]
     Active Substance: LOXOPROFEN SODIUM
     Dosage: 100 MG
     Route: 048
     Dates: start: 20140401
  9. GASTER [Concomitant]
     Active Substance: FAMOTIDINE
     Dosage: UNK UKN, UNK
     Dates: end: 20140415
  10. AMARYL [Concomitant]
     Active Substance: GLIMEPIRIDE
     Dosage: UNK UKN, UNK
     Route: 048
  11. LIPIDIL [Concomitant]
     Active Substance: FENOFIBRATE
     Dosage: UNK UKN, UNK
     Route: 048
     Dates: end: 20140415
  12. MICAMLO [Concomitant]
     Active Substance: AMLODIPINE BESYLATE\TELMISARTAN
     Dosage: UNK UKN, UNK
     Route: 048
     Dates: end: 20140415

REACTIONS (1)
  - Renal function test abnormal [Recovered/Resolved]

NARRATIVE: CASE EVENT DATE: 20140415
